FAERS Safety Report 4875804-1 (Version None)
Quarter: 2006Q1

REPORT INFORMATION
  Report Type: 
  Country: None (occurrence: None)
  Receive Date: 20060106
  Receipt Date: 20051223
  Transmission Date: 20060701
  Serious: Yes (Hospitalization)
  Sender: FDA-Public Use
  Company Number: 220594

PATIENT
  Age: 42 Year
  Sex: Female

DRUGS (5)
  1. HERCEPTIN [Suspect]
     Indication: BREAST CANCER METASTATIC
     Dosage: SEE IMAGE
     Dates: end: 20051129
  2. HERCEPTIN [Suspect]
     Indication: BREAST CANCER METASTATIC
     Dosage: SEE IMAGE
     Dates: start: 20051220, end: 20051220
  3. ACETAMINOPHEN [Concomitant]
  4. BENADRYL (DIPEHNHYDRAMINE HYDROCHLORIDE) [Concomitant]
  5. PNEUMONIA VACCINE (PNEUMOCOCCAL VACCINE) [Concomitant]

REACTIONS (3)
  - CATHETER SITE ERYTHEMA [None]
  - DEVICE FAILURE [None]
  - PYREXIA [None]
